FAERS Safety Report 5362272-9 (Version None)
Quarter: 2007Q2

REPORT INFORMATION
  Report Type: 
  Country: None (occurrence: None)
  Receive Date: 20070619
  Receipt Date: 20070612
  Transmission Date: 20071010
  Serious: Yes (Other)
  Sender: FDA-Public Use
  Company Number: JP-MERCK-0705USA03881

PATIENT
  Age: 76 Year
  Sex: Male
  Weight: 52 kg

DRUGS (8)
  1. PRIMAXIN [Suspect]
     Indication: PNEUMONIA
     Route: 042
     Dates: start: 20070328, end: 20070409
  2. PLETAL [Concomitant]
     Indication: CEREBRAL INFARCTION
     Route: 048
     Dates: start: 20070105, end: 20070528
  3. ASPIRIN [Concomitant]
     Indication: CEREBRAL INFARCTION
     Route: 048
     Dates: start: 20070105, end: 20070528
  4. MAGNESIUM OXIDE [Concomitant]
     Indication: CONSTIPATION
     Route: 048
  5. SENNARIDE [Concomitant]
     Indication: CONSTIPATION
     Route: 048
     Dates: start: 20070105, end: 20070528
  6. HUMULIN N [Concomitant]
     Indication: DIABETES MELLITUS
     Route: 058
     Dates: start: 20070105, end: 20070528
  7. LEVOFLOXACIN [Suspect]
     Indication: PNEUMONIA
     Route: 048
     Dates: start: 20070321, end: 20070327
  8. PL-GRANULES [Concomitant]
     Indication: PNEUMONIA
     Route: 065
     Dates: start: 20070321, end: 20070327

REACTIONS (5)
  - ALANINE AMINOTRANSFERASE INCREASED [None]
  - ASPARTATE AMINOTRANSFERASE INCREASED [None]
  - BLOOD ALKALINE PHOSPHATASE INCREASED [None]
  - BLOOD LACTATE DEHYDROGENASE INCREASED [None]
  - GAMMA-GLUTAMYLTRANSFERASE INCREASED [None]
